FAERS Safety Report 9657488 (Version 2)
Quarter: 2016Q1

REPORT INFORMATION
  Report Type: Spontaneous
  Country: US (occurrence: US)
  Receive Date: 20131030
  Receipt Date: 20160201
  Transmission Date: 20160526
  Serious: Yes (Death, Other)
  Sender: FDA-Public Use
  Company Number: US-NAPPMUNDI-USA-2011-0079721

PATIENT
  Age: 17 Year
  Sex: Male

DRUGS (1)
  1. OXYCONTIN [Suspect]
     Active Substance: OXYCODONE HYDROCHLORIDE
     Indication: DRUG ABUSE
     Dosage: UNK
     Route: 048

REACTIONS (6)
  - Completed suicide [Fatal]
  - Drug abuse [Unknown]
  - Physical assault [Unknown]
  - Altered state of consciousness [Unknown]
  - Helplessness [Unknown]
  - Drug dependence [Unknown]

NARRATIVE: CASE EVENT DATE: 20051227
